FAERS Safety Report 10563357 (Version 1)
Quarter: 2014Q4

REPORT INFORMATION
  Report Type: Spontaneous
  Country: US (occurrence: US)
  Receive Date: 20141104
  Receipt Date: 20141104
  Transmission Date: 20150529
  Serious: No
  Sender: FDA-Public Use
  Company Number: US-PFIZER INC-2014303524

PATIENT
  Age: 67 Year
  Sex: Female
  Weight: 59 kg

DRUGS (2)
  1. NEURONTIN [Suspect]
     Active Substance: GABAPENTIN
     Dosage: 700 MG, 4X/DAY
     Dates: end: 20141029
  2. NEURONTIN [Suspect]
     Active Substance: GABAPENTIN
     Dosage: 400 MG, 4X/DAY
     Dates: start: 20141030

REACTIONS (6)
  - Pain [Not Recovered/Not Resolved]
  - Speech disorder [Unknown]
  - Burning sensation [Unknown]
  - Balance disorder [Unknown]
  - Coordination abnormal [Unknown]
  - Feeling abnormal [Unknown]
